FAERS Safety Report 12337797 (Version 1)
Quarter: 2016Q2

REPORT INFORMATION
  Report Type: Spontaneous
  Country: GB (occurrence: GB)
  Receive Date: 20160505
  Receipt Date: 20160505
  Transmission Date: 20160815
  Serious: Yes (Other)
  Sender: FDA-Public Use
  Company Number: GB-BAYER-2016-085626

PATIENT
  Sex: Male

DRUGS (1)
  1. SORAFENIB (RAF KINASE INHIBITOR) [Suspect]
     Active Substance: SORAFENIB
     Indication: THYROID CANCER METASTATIC
     Dosage: 200 MG, BID (2 IN 1 DAY)
     Route: 048

REACTIONS (1)
  - Tooth resorption [Unknown]
